FAERS Safety Report 8325805 (Version 4)
Quarter: 2017Q1

REPORT INFORMATION
  Report Type: Spontaneous
  Country: JP (occurrence: JP)
  Receive Date: 20120106
  Receipt Date: 20170307
  Transmission Date: 20170429
  Serious: Yes (Hospitalization, Other)
  Sender: FDA-Public Use
  Company Number: JP-GLAXOSMITHKLINE-B0729377A

PATIENT
  Age: 29 Year
  Sex: Male

DRUGS (4)
  1. REYATAZ [Concomitant]
     Active Substance: ATAZANAVIR SULFATE
     Indication: HIV INFECTION
     Dosage: 300 MG, QD
     Route: 048
     Dates: start: 20090108, end: 20110821
  2. TRUVADA [Concomitant]
     Active Substance: EMTRICITABINE\TENOFOVIR DISOPROXIL FUMARATE
     Indication: HIV INFECTION
     Dosage: 1 DF, QD
     Route: 048
     Dates: start: 20090108
  3. FLUTICASONE PROPIONATE+SALMETEROL XINAFOATE 100 [Suspect]
     Active Substance: FLUTICASONE PROPIONATE\SALMETEROL XINAFOATE
     Indication: ASTHMA
     Dosage: 100 ?G, BID
     Route: 055
     Dates: start: 20100326, end: 20110623
  4. RITONAVIR. [Interacting]
     Active Substance: RITONAVIR
     Indication: HIV INFECTION
     Dosage: 1 DF, QD
     Route: 048
     Dates: start: 20090107, end: 20110624

REACTIONS (16)
  - Compression fracture [Recovering/Resolving]
  - Haemorrhage subcutaneous [Unknown]
  - Bone pain [Unknown]
  - Cushing^s syndrome [Recovering/Resolving]
  - Drug interaction [Unknown]
  - Cushingoid [Unknown]
  - Weight increased [Unknown]
  - Adrenal insufficiency [Recovering/Resolving]
  - Central obesity [Unknown]
  - Blood cortisol decreased [Unknown]
  - Blood corticotrophin decreased [Unknown]
  - Acne [Unknown]
  - Drug level increased [Unknown]
  - Osteoporosis [Unknown]
  - Back pain [Unknown]
  - Libido decreased [Unknown]

NARRATIVE: CASE EVENT DATE: 20110518
